FAERS Safety Report 24254146 (Version 1)
Quarter: 2024Q3

REPORT INFORMATION
  Report Type: Spontaneous
  Country: US (occurrence: US)
  Receive Date: 20240827
  Receipt Date: 20240827
  Transmission Date: 20241017
  Serious: Yes (Other)
  Sender: SANOFI AVENTIS
  Company Number: US-SA-2024SA247523

PATIENT
  Age: 30 Year
  Sex: Female

DRUGS (2)
  1. FLUDARABINE PHOSPHATE [Suspect]
     Active Substance: FLUDARABINE PHOSPHATE
     Indication: Congenital aplastic anaemia
     Dosage: 30 MG/M2, QD
  2. ANTI-THYMOCYTE GLOBULIN (RABBIT) NOS [Suspect]
     Active Substance: LAPINE T-LYMPHOCYTE IMMUNE GLOBULIN
     Indication: Congenital aplastic anaemia
     Dosage: UNK
     Route: 040

REACTIONS (4)
  - Sinus node dysfunction [Recovered/Resolved]
  - Extrasystoles [Recovered/Resolved]
  - Right ventricular dysfunction [Recovered/Resolved]
  - Pyrexia [Recovered/Resolved]
